FAERS Safety Report 11437543 (Version 1)
Quarter: 2015Q3

REPORT INFORMATION
  Report Type: Spontaneous
  Country: US (occurrence: US)
  Receive Date: 20150821
  Receipt Date: 20150821
  Transmission Date: 20151125
  Serious: No
  Sender: FDA-Public Use
  Company Number: US-ELI_LILLY_AND_COMPANY-US200705004045

PATIENT
  Age: 27 Year
  Sex: Female

DRUGS (1)
  1. CYMBALTA [Suspect]
     Active Substance: DULOXETINE HYDROCHLORIDE
     Indication: DEPRESSED MOOD
     Dosage: 60 MG, UNKNOWN
     Route: 048

REACTIONS (5)
  - Feeling abnormal [Unknown]
  - Vomiting [Unknown]
  - Dizziness [Unknown]
  - Amnesia [Unknown]
  - Nausea [Unknown]
